FAERS Safety Report 22657194 (Version 2)
Quarter: 2023Q4

REPORT INFORMATION
  Report Type: Spontaneous
  Country: US (occurrence: US)
  Receive Date: 20230630
  Receipt Date: 20231009
  Transmission Date: 20240110
  Serious: No
  Sender: FDA-Public Use
  Company Number: US-SA-SAC20230628001131

PATIENT
  Sex: Female

DRUGS (1)
  1. DUPIXENT [Suspect]
     Active Substance: DUPILUMAB
     Dosage: 300 MG, FREQUENCY: OTHER
     Route: 058

REACTIONS (5)
  - Injection site urticaria [Unknown]
  - Flushing [Unknown]
  - Headache [Unknown]
  - Dry eye [Unknown]
  - Injection site pruritus [Unknown]
